FAERS Safety Report 7428824-7 (Version None)
Quarter: 2011Q2

REPORT INFORMATION
  Report Type: 
  Country: None (occurrence: None)
  Receive Date: 20110421
  Receipt Date: 20110418
  Transmission Date: 20111010
  Serious: Yes (Other)
  Sender: FDA-Public Use
  Company Number: NL-PFIZER INC-2010137142

PATIENT
  Age: 70 Year
  Sex: Male

DRUGS (2)
  1. METFORMIN [Concomitant]
     Indication: TYPE 2 DIABETES MELLITUS
     Dosage: UNK
  2. XALATAN [Suspect]
     Dosage: ONE DROP IN EACH EYE ONCE DAILY
     Dates: start: 20100101

REACTIONS (4)
  - ARTHRALGIA [None]
  - JOINT EFFUSION [None]
  - MYALGIA [None]
  - EYE IRRITATION [None]
